FAERS Safety Report 15975365 (Version 1)
Quarter: 2019Q1

REPORT INFORMATION
  Report Type: Spontaneous
  Country: US (occurrence: US)
  Receive Date: 20190218
  Receipt Date: 20190218
  Transmission Date: 20190418
  Serious: No
  Sender: FDA-Public Use
  Company Number: US-DSJP-DSU-2017-145197

PATIENT

DRUGS (5)
  1. BENICAR [Suspect]
     Active Substance: OLMESARTAN MEDOXOMIL
     Dosage: 20 MG, QD
     Dates: start: 20110407
  2. PENICILLIN NOS [Suspect]
     Active Substance: PENICILLIN
     Indication: PRODUCT USED FOR UNKNOWN INDICATION
     Dosage: UNK
  3. BENICAR [Suspect]
     Active Substance: OLMESARTAN MEDOXOMIL
     Dosage: 5 MG, UNK
     Dates: start: 20170517
  4. BENICAR [Suspect]
     Active Substance: OLMESARTAN MEDOXOMIL
     Indication: BLOOD PRESSURE MANAGEMENT
     Dosage: 20 MG, QD
     Dates: start: 20100721, end: 20110111
  5. BENICAR [Suspect]
     Active Substance: OLMESARTAN MEDOXOMIL
     Dosage: 40 MG, UNK
     Dates: start: 20110302, end: 20110407

REACTIONS (7)
  - Umbilical hernia [Unknown]
  - Sprue-like enteropathy [Not Recovered/Not Resolved]
  - Gastritis erosive [Unknown]
  - Haemorrhoids [Unknown]
  - Diverticulum [Unknown]
  - Abdominal pain upper [Unknown]
  - Pollakiuria [Recovering/Resolving]

NARRATIVE: CASE EVENT DATE: 20101019
